FAERS Safety Report 26188656 (Version 2)
Quarter: 2025Q4

REPORT INFORMATION
  Report Type: Report from Study
  Country: EU (occurrence: EU)
  Receive Date: 20251222
  Receipt Date: 20251226
  Transmission Date: 20260118
  Serious: Yes (Death, Life-Threatening, Hospitalization)
  Sender: ABBVIE
  Company Number: EU-ABBVIE-6598433

PATIENT
  Age: 70 Year
  Sex: Female
  Weight: 61 kg

DRUGS (16)
  1. FOSCARBIDOPA\FOSLEVODOPA [Suspect]
     Active Substance: FOSCARBIDOPA\FOSLEVODOPA
     Indication: Parkinson^s disease
     Dosage: LOADING DOSE DRUG:?0.9 ML?CONTINUOUS RATE PUMP SETTING BASE?0.30 ML/H?CONTINUOUS RATE PUMP SETTIN...
     Route: 058
     Dates: start: 20240627, end: 20240701
  2. FOSCARBIDOPA\FOSLEVODOPA [Suspect]
     Active Substance: FOSCARBIDOPA\FOSLEVODOPA
     Dosage: LOADING DOSE DRUG:?0.9 ML?CONTINUOUS RATE PUMP SETTING BASE?0.30 ML/H?CONTINUOUS RATE PUMP SETTIN...
     Route: 058
     Dates: start: 20240701, end: 20240704
  3. FOSCARBIDOPA\FOSLEVODOPA [Suspect]
     Active Substance: FOSCARBIDOPA\FOSLEVODOPA
     Dosage: LOADING DOSE DRUG:?0.9 ML?CONTINUOUS RATE PUMP SETTING BASE?0.34 ML/H?CONTINUOUS RATE PUMP SETTIN...
     Route: 058
     Dates: start: 20240704, end: 20240709
  4. FOSCARBIDOPA\FOSLEVODOPA [Suspect]
     Active Substance: FOSCARBIDOPA\FOSLEVODOPA
     Dosage: LOADING DOSE DRUG:?0.9 ML?CONTINUOUS RATE PUMP SETTING BASE?0.40 ML/H?CONTINUOUS RATE PUMP SETTIN...
     Route: 058
     Dates: start: 20240709, end: 20240717
  5. FOSCARBIDOPA\FOSLEVODOPA [Suspect]
     Active Substance: FOSCARBIDOPA\FOSLEVODOPA
     Dosage: LOADING DOSE DRUG:?0.9 ML?CONTINUOUS RATE PUMP SETTING BASE?0.44 ML/H?CONTINUOUS RATE PUMP SETTIN...
     Route: 058
     Dates: start: 20240717, end: 20240807
  6. FOSCARBIDOPA\FOSLEVODOPA [Suspect]
     Active Substance: FOSCARBIDOPA\FOSLEVODOPA
     Dosage: LOADING DOSE DRUG:?0.9 ML?CONTINUOUS RATE PUMP SETTING BASE?0.47 ML/H?CONTINUOUS RATE PUMP SETTIN...
     Route: 058
     Dates: start: 20240807, end: 20240906
  7. FOSCARBIDOPA\FOSLEVODOPA [Suspect]
     Active Substance: FOSCARBIDOPA\FOSLEVODOPA
     Dosage: LOADING DOSE DRUG:?0.9 ML?CONTINUOUS RATE PUMP SETTING BASE?0.47 ML/H?CONTINUOUS RATE PUMP SETTIN...
     Route: 058
     Dates: start: 20240906, end: 20250107
  8. FOSCARBIDOPA\FOSLEVODOPA [Suspect]
     Active Substance: FOSCARBIDOPA\FOSLEVODOPA
     Dosage: LOADING DOSE DRUG:?0.9 ML?CONTINUOUS RATE PUMP SETTING BASE?0.47 ML/H?CONTINUOUS RATE PUMP SETTIN...
     Route: 058
     Dates: start: 20250107
  9. ESTRADIOL [Concomitant]
     Active Substance: ESTRADIOL
     Indication: Prophylaxis
     Route: 067
     Dates: start: 20200501
  10. POLYETHYLENE GLYCOLS [Concomitant]
     Active Substance: POLYETHYLENE GLYCOLS
     Indication: Constipation
     Dosage: 1 SACHET
     Route: 048
     Dates: start: 20210113
  11. MIRABEGRON [Concomitant]
     Active Substance: MIRABEGRON
     Indication: Hypertonic bladder
     Route: 048
     Dates: start: 20220228
  12. MIRTAZAPINE [Concomitant]
     Active Substance: MIRTAZAPINE
     Indication: Insomnia
     Route: 048
     Dates: start: 20231016
  13. VITAMIN B12 W/VITAMIN B6/FOLIC ACID [Concomitant]
     Indication: Supplementation therapy
     Route: 048
     Dates: start: 20240627
  14. FUCIDIN [Concomitant]
     Active Substance: FUSIDATE SODIUM
     Indication: Skin infection
     Route: 061
     Dates: start: 20241003
  15. CLOPIDOGREL [Concomitant]
     Active Substance: CLOPIDOGREL BISULFATE
     Indication: Cerebrovascular accident prophylaxis
     Route: 048
     Dates: start: 20250204
  16. ATORVASTATIN [Concomitant]
     Active Substance: ATORVASTATIN
     Indication: Prophylaxis
     Route: 048
     Dates: start: 20250204

REACTIONS (1)
  - Subarachnoid haemorrhage [Fatal]

NARRATIVE: CASE EVENT DATE: 20251209
